FAERS Safety Report 7280300-0 (Version None)
Quarter: 2011Q1

REPORT INFORMATION
  Report Type: 
  Country: None (occurrence: None)
  Receive Date: 20110208
  Receipt Date: 20110124
  Transmission Date: 20110831
  Serious: Yes (Other)
  Sender: FDA-Public Use
  Company Number: GB-GENENTECH-301737

PATIENT
  Sex: Female

DRUGS (6)
  1. LUCENTIS [Suspect]
     Indication: MACULAR DEGENERATION
     Dosage: 0.5 MG, UNK
     Route: 031
  2. LUCENTIS [Suspect]
     Dosage: UNK
     Route: 031
     Dates: start: 20080109
  3. LUCENTIS [Suspect]
     Dosage: 0.5 MG, UNK
     Route: 031
  4. LUCENTIS [Suspect]
     Dosage: 0.5 MG, UNK
     Route: 031
  5. LUCENTIS [Suspect]
     Dosage: 7 UNK, UNK
     Route: 031
     Dates: start: 20100528
  6. LUCENTIS [Suspect]
     Dosage: 0.5 MG, UNK
     Route: 031

REACTIONS (6)
  - DRUG SPECIFIC ANTIBODY PRESENT [None]
  - VITRITIS [None]
  - HYPERSENSITIVITY [None]
  - UVEITIS [None]
  - HYPOPYON [None]
  - VITREOUS FLOATERS [None]
